FAERS Safety Report 8292698-5 (Version None)
Quarter: 2012Q2

REPORT INFORMATION
  Report Type: 
  Country: None (occurrence: None)
  Receive Date: 20120417
  Receipt Date: 20110626
  Transmission Date: 20120825
  Serious: No
  Sender: FDA-Public Use
  Company Number: US-ASTRAZENECA-2011SE38496

PATIENT
  Sex: Male
  Weight: 81.6 kg

DRUGS (2)
  1. LIPITOR [Concomitant]
     Indication: BLOOD CHOLESTEROL INCREASED
  2. NEXIUM [Suspect]
     Indication: GASTRITIS
     Route: 048
     Dates: start: 20000101

REACTIONS (3)
  - DYSPHONIA [None]
  - LARYNGEAL INFLAMMATION [None]
  - SPASMODIC DYSPHONIA [None]
